FAERS Safety Report 12890335 (Version 1)
Quarter: 2016Q4

REPORT INFORMATION
  Report Type: Spontaneous
  Country: AU (occurrence: AU)
  Receive Date: 20161027
  Receipt Date: 20161027
  Transmission Date: 20170207
  Serious: Yes (Hospitalization, Other)
  Sender: FDA-Public Use
  Company Number: AU-BRISTOL-MYERS SQUIBB COMPANY-BMS-2016-089034

PATIENT
  Age: 9 Decade
  Sex: Female

DRUGS (1)
  1. OPDIVO [Suspect]
     Active Substance: NIVOLUMAB
     Indication: MALIGNANT MELANOMA
     Dosage: N/A
     Route: 042

REACTIONS (5)
  - Confusional state [Unknown]
  - Rheumatoid arthritis [Unknown]
  - Dementia [Unknown]
  - Neuropathy peripheral [Unknown]
  - Raynaud^s phenomenon [Unknown]
